FAERS Safety Report 5793273-4 (Version None)
Quarter: 2008Q2

REPORT INFORMATION
  Report Type: 
  Country: None (occurrence: None)
  Receive Date: 20080626
  Receipt Date: 20080626
  Transmission Date: 20081010
  Serious: Yes (Other)
  Sender: FDA-Public Use
  Company Number: None

PATIENT
  Age: 59 Year
  Sex: Male
  Weight: 92.9874 kg

DRUGS (1)
  1. EQUATE - POVIDONE-IODINE [Suspect]
     Indication: STERILISATION
     Dosage: POVIDINE-IODINE 10% DAILY OTHER
     Route: 050
     Dates: start: 20070601, end: 20071231

REACTIONS (7)
  - APPLICATION SITE DISCOLOURATION [None]
  - APPLICATION SITE EXCORIATION [None]
  - APPLICATION SITE IRRITATION [None]
  - APPLICATION SITE PAIN [None]
  - DRUG INEFFECTIVE [None]
  - ONYCHOMADESIS [None]
  - WOUND [None]
